FAERS Safety Report 4449679-9 (Version None)
Quarter: 2004Q3

REPORT INFORMATION
  Report Type: 
  Country: None (occurrence: None)
  Receive Date: 20040913
  Receipt Date: 20040903
  Transmission Date: 20050211
  Serious: Yes (Hospitalization)
  Sender: FDA-Public Use
  Company Number: HQWYE067421MAY04

PATIENT
  Age: 14 Month
  Sex: Male
  Weight: 11.8 kg

DRUGS (2)
  1. CHILDREN'S ADVIL [Suspect]
     Indication: PYREXIA
     Dosage: 1.5 DROPPER EVERY 6 TO 8 HOURS^, ORAL
     Route: 048
     Dates: start: 20040501
  2. TYLENOL [Concomitant]

REACTIONS (2)
  - DRUG INEFFECTIVE [None]
  - FEBRILE CONVULSION [None]
